FAERS Safety Report 6434370-X (Version None)
Quarter: 2009Q4

REPORT INFORMATION
  Report Type: 
  Country: None (occurrence: None)
  Receive Date: 20091110
  Receipt Date: 20090423
  Transmission Date: 20100525
  Serious: No
  Sender: FDA-Public Use
  Company Number: US-ASTRAZENECA-2009SE08927

PATIENT
  Sex: Female

DRUGS (1)
  1. PRILOSEC OTC [Suspect]
     Dosage: 7 TABLET, 1 ONLY
     Route: 048
     Dates: start: 20090423, end: 20090423

REACTIONS (1)
  - INCORRECT DOSE ADMINISTERED [None]
